FAERS Safety Report 17206053 (Version 1)
Quarter: 2019Q4

REPORT INFORMATION
  Report Type: Spontaneous
  Country: US (occurrence: US)
  Receive Date: 20191205
  Receipt Date: 20191205
  Transmission Date: 20200122
  Serious: No
  Sender: FDA-Public Use
  Company Number: None

PATIENT
  Age: 55 Year
  Sex: Male

DRUGS (1)
  1. COSENTYX [Suspect]
     Active Substance: SECUKINUMAB
     Dosage: OTHER
     Route: 058
     Dates: start: 201904, end: 201910

REACTIONS (3)
  - Skin haemorrhage [None]
  - Therapeutic product effect incomplete [None]
  - Pruritus [None]

NARRATIVE: CASE EVENT DATE: 20191205
